FAERS Safety Report 5263276-7 (Version None)
Quarter: 2007Q1

REPORT INFORMATION
  Report Type: 
  Country: None (occurrence: None)
  Receive Date: 20070312
  Receipt Date: 20070226
  Transmission Date: 20070707
  Serious: No
  Sender: FDA-Public Use
  Company Number: SE-ELI_LILLY_AND_COMPANY-SE200611004382

PATIENT
  Age: 80 Year
  Sex: Male

DRUGS (15)
  1. CYMBALTA [Suspect]
     Indication: DEPRESSION
     Dosage: 60 MG, DAILY (1/D)
     Route: 065
     Dates: start: 20050930
  2. CYMBALTA [Interacting]
     Dosage: 60 MG, DAILY (1/D)
     Route: 065
     Dates: start: 20051010
  3. CYMBALTA [Interacting]
     Dosage: 30 MG, DAILY (1/D)
     Route: 065
     Dates: end: 20051118
  4. DIMETIKON [Interacting]
  5. TROMBYL [Interacting]
  6. FEM-MONO [Interacting]
  7. EMCONCOR [Interacting]
  8. COZAAR [Interacting]
  9. SIMVASTATIN [Interacting]
  10. INOLAXOL [Concomitant]
  11. LAKTIPEX [Concomitant]
  12. NOVORAPID [Concomitant]
  13. NOVOMIX                            /014758 [Concomitant]
  14. MIANSERIN [Interacting]
     Dosage: 20 MG, UNK
  15. STESOLID [Interacting]
     Dosage: 10 MG, UNK

REACTIONS (8)
  - ANXIETY [None]
  - ASTHENIA [None]
  - DIZZINESS [None]
  - HYPERHIDROSIS [None]
  - MALAISE [None]
  - MUSCLE SPASMS [None]
  - NAUSEA [None]
  - TREMOR [None]
